FAERS Safety Report 14629066 (Version 4)
Quarter: 2018Q2

REPORT INFORMATION
  Report Type: Report from Study
  Country: None (occurrence: US)
  Receive Date: 20180313
  Receipt Date: 20180509
  Transmission Date: 20180711
  Serious: No
  Sender: FDA-Public Use
  Company Number: US-ABBVIE-17K-163-2105796-00

PATIENT
  Age: 67 Year
  Sex: Male
  Weight: 122.58 kg

DRUGS (8)
  1. CRESTOR [Concomitant]
     Active Substance: ROSUVASTATIN CALCIUM
     Indication: PROPHYLAXIS
  2. LEXAPRO [Concomitant]
     Active Substance: ESCITALOPRAM OXALATE
     Indication: POST-TRAUMATIC STRESS DISORDER
  3. HUMIRA [Suspect]
     Active Substance: ADALIMUMAB
     Route: 058
     Dates: start: 20180313
  4. WELLBUTRIN [Concomitant]
     Active Substance: BUPROPION HYDROCHLORIDE
     Indication: POST-TRAUMATIC STRESS DISORDER
  5. ALFUZOSIN [Concomitant]
     Active Substance: ALFUZOSIN
     Indication: BENIGN PROSTATIC HYPERPLASIA
  6. HYDROXYZINE [Concomitant]
     Active Substance: HYDROXYZINE HYDROCHLORIDE
     Indication: PRURITUS
  7. OMEPRAZOLE. [Concomitant]
     Active Substance: OMEPRAZOLE
     Indication: GASTROOESOPHAGEAL REFLUX DISEASE
  8. HUMIRA [Suspect]
     Active Substance: ADALIMUMAB
     Indication: PSORIASIS
     Route: 058
     Dates: start: 201703, end: 20180130

REACTIONS (3)
  - Psoriasis [Not Recovered/Not Resolved]
  - Drug effect incomplete [Not Recovered/Not Resolved]
  - Rash generalised [Not Recovered/Not Resolved]

NARRATIVE: CASE EVENT DATE: 201709
